FAERS Safety Report 6535807-8 (Version None)
Quarter: 2010Q1

REPORT INFORMATION
  Report Type: 
  Country: None (occurrence: None)
  Receive Date: 20100113
  Receipt Date: 20100111
  Transmission Date: 20100710
  Serious: Yes (Other)
  Sender: FDA-Public Use
  Company Number: US-PERRIGO-09US005320

PATIENT
  Sex: Female
  Weight: 86.168 kg

DRUGS (3)
  1. TIOCONAZOLE 6.5% 426 [Suspect]
     Indication: VULVOVAGINAL PRURITUS
     Dosage: 1 APPLICATION, SINGLE
     Route: 061
     Dates: start: 20091123, end: 20091123
  2. TIOCONAZOLE 6.5% 426 [Suspect]
     Indication: VAGINAL DISCHARGE
  3. MULTI-VITAMIN [Concomitant]
     Indication: DRUG USE FOR UNKNOWN INDICATION
     Dosage: UNK
     Route: 048

REACTIONS (15)
  - CHILLS [None]
  - DISORIENTATION [None]
  - DIZZINESS [None]
  - DYSURIA [None]
  - FEELING OF BODY TEMPERATURE CHANGE [None]
  - HEADACHE [None]
  - HYPERHIDROSIS [None]
  - HYPERSENSITIVITY [None]
  - NAUSEA [None]
  - PAIN [None]
  - PALPITATIONS [None]
  - SYNCOPE [None]
  - TREMOR [None]
  - VAGINAL SWELLING [None]
  - VULVOVAGINAL PAIN [None]
